FAERS Safety Report 18823242 (Version 1)
Quarter: 2021Q1

REPORT INFORMATION
  Report Type: Spontaneous
  Country: US (occurrence: US)
  Receive Date: 20210201
  Receipt Date: 20210201
  Transmission Date: 20210419
  Serious: No
  Sender: FDA-Public Use
  Company Number: US-ABBVIE-20K-163-3218072-00

PATIENT
  Age: 51 Year
  Sex: Female

DRUGS (7)
  1. MESALAMINE. [Concomitant]
     Active Substance: MESALAMINE
     Indication: COLITIS ULCERATIVE
  2. HUMIRA [Suspect]
     Active Substance: ADALIMUMAB
     Indication: COLITIS ULCERATIVE
     Dosage: HUMIRA WITH CITRATE
     Route: 058
     Dates: start: 201910
  3. VITAMIN D [Concomitant]
     Active Substance: VITAMIN D NOS
     Indication: VITAMIN SUPPLEMENTATION
  4. AZATHIOPRINE. [Concomitant]
     Active Substance: AZATHIOPRINE
     Indication: COLITIS ULCERATIVE
  5. HUMIRA [Suspect]
     Active Substance: ADALIMUMAB
     Dosage: CITRATE FREE HUMIRA
     Route: 058
     Dates: start: 201901, end: 20190701
  6. HUMIRA [Suspect]
     Active Substance: ADALIMUMAB
     Dosage: CITRATE FREE HUMIRA
     Route: 058
     Dates: start: 20190701, end: 201909
  7. AZATHIOPRINE. [Concomitant]
     Active Substance: AZATHIOPRINE
     Indication: PRODUCT USED FOR UNKNOWN INDICATION

REACTIONS (15)
  - Protein total increased [Unknown]
  - White blood cell count increased [Unknown]
  - Injection site pain [Recovering/Resolving]
  - Injection site erythema [Not Recovered/Not Resolved]
  - Device issue [Unknown]
  - Injection site papule [Not Recovered/Not Resolved]
  - Cystitis [Recovering/Resolving]
  - Monocyte count increased [Unknown]
  - Injection site pruritus [Not Recovered/Not Resolved]
  - Wrong technique in product usage process [Unknown]
  - Neutrophil count increased [Unknown]
  - Injection site swelling [Unknown]
  - Incorrect dose administered [Unknown]
  - Blood bilirubin increased [Unknown]
  - Platelet count increased [Unknown]

NARRATIVE: CASE EVENT DATE: 2019
